FAERS Safety Report 22073084 (Version 1)
Quarter: 2023Q1

REPORT INFORMATION
  Report Type: Spontaneous
  Country: HU (occurrence: HU)
  Receive Date: 20230308
  Receipt Date: 20230308
  Transmission Date: 20230417
  Serious: Yes (Other)
  Sender: FDA-Public Use
  Company Number: HU-002147023-NVSC2023HU046470

PATIENT

DRUGS (3)
  1. DICLOFENAC [Suspect]
     Active Substance: DICLOFENAC
     Indication: Influenza
     Dosage: UNK
     Route: 065
  2. VITAMIN C [Concomitant]
     Active Substance: ASCORBIC ACID
     Indication: Product used for unknown indication
     Dosage: UNK
     Route: 065
  3. AZITHROMYCIN [Concomitant]
     Active Substance: AZITHROMYCIN
     Indication: Prophylaxis
     Dosage: (200 MG/5 ML) FOR 5 DAYS 1X 6 ML
     Route: 065

REACTIONS (8)
  - Pyrexia [Unknown]
  - Insomnia [Unknown]
  - Rhinorrhoea [Unknown]
  - Eating disorder [Unknown]
  - Cough [Unknown]
  - Weight decreased [Unknown]
  - Product use in unapproved indication [Unknown]
  - Asthenia [Unknown]
